FAERS Safety Report 4316676-3 (Version None)
Quarter: 2004Q1

REPORT INFORMATION
  Report Type: 
  Country: None (occurrence: None)
  Receive Date: 20040311
  Receipt Date: 20040224
  Transmission Date: 20041129
  Serious: Yes (Hospitalization)
  Sender: FDA-Public Use
  Company Number: 2004-06728

PATIENT
  Age: 35 Year
  Sex: Female

DRUGS (3)
  1. VIREAD [Suspect]
     Indication: HIV INFECTION
     Dosage: 300 MG QD PO
     Route: 048
  2. EPIVIR [Concomitant]
  3. KALETRA [Concomitant]

REACTIONS (4)
  - ABDOMINAL PAIN [None]
  - HYPOKALAEMIA [None]
  - RENAL FAILURE [None]
  - VOMITING [None]
